FAERS Safety Report 9048942 (Version 1)
Quarter: 2013Q1

REPORT INFORMATION
  Report Type: Spontaneous
  Country: US (occurrence: None)
  Receive Date: 20130116
  Receipt Date: 20130116
  Transmission Date: 20140127
  Serious: Yes (Hospitalization)
  Sender: FDA-Public Use
  Company Number: 2012MA013903

PATIENT
  Age: 59 Year
  Sex: Female

DRUGS (1)
  1. M-ZOLE [Suspect]
     Indication: FUNGAL INFECTION
     Route: 067
     Dates: start: 20121122, end: 20121128

REACTIONS (2)
  - Drug ineffective [None]
  - Haemorrhage [None]
